FAERS Safety Report 8400826-3 (Version None)
Quarter: 2012Q2

REPORT INFORMATION
  Report Type: 
  Country: None (occurrence: None)
  Receive Date: 20120531
  Receipt Date: 20120530
  Transmission Date: 20120825
  Serious: Yes (Hospitalization, Other)
  Sender: FDA-Public Use
  Company Number: US-ROCHE-1067373

PATIENT
  Sex: Male
  Weight: 93.9 kg

DRUGS (2)
  1. IPILIMUMAB [Concomitant]
     Dates: end: 20120322
  2. ZELBORAF [Suspect]
     Indication: METASTATIC MALIGNANT MELANOMA
     Route: 048
     Dates: start: 20120420

REACTIONS (8)
  - RASH [None]
  - PYREXIA [None]
  - FATIGUE [None]
  - OESOPHAGEAL STENOSIS [None]
  - ARTHRALGIA [None]
  - AGEUSIA [None]
  - THROMBOSIS [None]
  - DECREASED APPETITE [None]
